FAERS Safety Report 14707223 (Version 2)
Quarter: 2018Q4

REPORT INFORMATION
  Report Type: Spontaneous
  Country: RO (occurrence: RO)
  Receive Date: 20180403
  Receipt Date: 20181105
  Transmission Date: 20190204
  Serious: Yes (Death, Other)
  Sender: FDA-Public Use
  Company Number: RO-CIPLA LTD.-2018RO14062

PATIENT

DRUGS (3)
  1. CARBOPLATIN. [Suspect]
     Active Substance: CARBOPLATIN
     Indication: LUNG CANCER METASTATIC
     Dosage: AUC 6, CYCLICAL MEASURED AS Q3W (6 CYCLES)
     Route: 065
  2. ZOLEDRONIC ACID [Suspect]
     Active Substance: ZOLEDRONIC ACID
     Indication: LUNG CANCER METASTATIC
     Dosage: UNK, CYCLICAL, MEASURED AS Q3W (6 CYCLES)
     Route: 065
  3. PACLITAXEL. [Suspect]
     Active Substance: PACLITAXEL
     Indication: LUNG CANCER METASTATIC
     Dosage: 200 MG/M2, CYCLICAL MEASURED AS Q3W (6 CYCLES)
     Route: 065

REACTIONS (3)
  - Hepatotoxicity [Unknown]
  - Multiple organ dysfunction syndrome [Fatal]
  - Aplastic anaemia [Unknown]
